FAERS Safety Report 15492895 (Version 1)
Quarter: 2018Q4

REPORT INFORMATION
  Report Type: Spontaneous
  Country: US (occurrence: US)
  Receive Date: 20181004
  Receipt Date: 20181004
  Transmission Date: 20190205
  Serious: Yes (Death)
  Sender: FDA-Public Use
  Company Number: None

PATIENT
  Age: 40 Year
  Sex: Male

DRUGS (5)
  1. METOPROLOL TARTRATE. [Concomitant]
     Active Substance: METOPROLOL TARTRATE
  2. CLONIDINE. [Concomitant]
     Active Substance: CLONIDINE
  3. MYCOPHENOLATE [Suspect]
     Active Substance: MYCOPHENOLIC ACID
     Route: 048
     Dates: start: 20170426
  4. TOPIRAMATE. [Concomitant]
     Active Substance: TOPIRAMATE
  5. TACROLIMUS. [Suspect]
     Active Substance: TACROLIMUS
     Indication: PRODUCT USED FOR UNKNOWN INDICATION
     Dosage: ?          OTHER FREQUENCY:3MG QAM/2MG QPM;?
     Route: 048
     Dates: start: 20170426

REACTIONS (1)
  - Death [None]

NARRATIVE: CASE EVENT DATE: 20181003
